FAERS Safety Report 4484033-5 (Version None)
Quarter: 2004Q4

REPORT INFORMATION
  Report Type: 
  Country: None (occurrence: None)
  Receive Date: 20041025
  Receipt Date: 20040916
  Transmission Date: 20050328
  Serious: Yes (Other)
  Sender: FDA-Public Use
  Company Number: JP-MERCK-0409USA02010

PATIENT
  Age: 83 Year
  Sex: Female

DRUGS (4)
  1. PEPCID [Suspect]
     Indication: GASTRITIS
     Route: 048
     Dates: start: 20040601
  2. AMINO ACIDS (UNSPECIFIED) [Concomitant]
     Indication: HEPATIC FAILURE
     Route: 048
  3. LASIX [Concomitant]
     Route: 048
     Dates: start: 20040601
  4. ALDACTONE [Concomitant]
     Route: 048
     Dates: start: 20040601

REACTIONS (1)
  - URINARY RETENTION [None]
